FAERS Safety Report 19991037 (Version 1)
Quarter: 2021Q4

REPORT INFORMATION
  Report Type: Report from Study
  Country: BR (occurrence: BR)
  Receive Date: 20211025
  Receipt Date: 20211025
  Transmission Date: 20220303
  Serious: Yes (Other)
  Sender: FDA-Public Use
  Company Number: BR-NOVARTISPH-NVSC2021BR238269

PATIENT
  Sex: Female
  Weight: 67 kg

DRUGS (8)
  1. ATENOLOL [Suspect]
     Active Substance: ATENOLOL
     Indication: Myocardial infarction
     Dosage: UNK
     Route: 065
     Dates: start: 200909
  2. AMLODIPINE [Suspect]
     Active Substance: AMLODIPINE BESYLATE
     Indication: Myocardial infarction
     Dosage: UNK
     Route: 065
     Dates: start: 200909
  3. LOSARTAN [Suspect]
     Active Substance: LOSARTAN
     Indication: Myocardial infarction
     Dosage: UNK
     Route: 065
     Dates: start: 200909
  4. CLOPIDOGREL [Suspect]
     Active Substance: CLOPIDOGREL BISULFATE
     Indication: Coagulopathy
     Dosage: 75 MG, QD(STOPPED ABOUT 6 MONTHS AGO)
     Route: 048
     Dates: start: 2009
  5. CETROLAC [Concomitant]
     Indication: Product used for unknown indication
     Dosage: UNK
     Route: 065
  6. CILOSTAZOL [Concomitant]
     Active Substance: CILOSTAZOL
     Indication: Myocardial infarction
     Dosage: 100 MG, BID
     Route: 065
     Dates: start: 200909
  7. ASPIRIN\DIHYDROXYALUMINUM AMINOACETATE ANHYDROUS\MAGNESIUM CARBONATE [Concomitant]
     Active Substance: ASPIRIN\DIHYDROXYALUMINUM AMINOACETATE ANHYDROUS\MAGNESIUM CARBONATE
     Indication: Myocardial infarction
     Dosage: 2 DF, BID
     Route: 065
     Dates: start: 200909
  8. ASPIRIN\DIHYDROXYALUMINUM AMINOACETATE ANHYDROUS\MAGNESIUM CARBONATE [Concomitant]
     Active Substance: ASPIRIN\DIHYDROXYALUMINUM AMINOACETATE ANHYDROUS\MAGNESIUM CARBONATE
     Indication: Coagulopathy

REACTIONS (17)
  - Central vision loss [Not Recovered/Not Resolved]
  - Cataract [Recovered/Resolved]
  - Haemorrhage [Recovered/Resolved]
  - Blindness [Not Recovered/Not Resolved]
  - Macular oedema [Recovering/Resolving]
  - Infarction [Recovered/Resolved]
  - Eyelid oedema [Not Recovered/Not Resolved]
  - Gastric disorder [Recovered/Resolved]
  - Photophobia [Not Recovered/Not Resolved]
  - Eye pain [Unknown]
  - Pruritus [Unknown]
  - Hypertension [Not Recovered/Not Resolved]
  - Condition aggravated [Not Recovered/Not Resolved]
  - Hyperhidrosis [Unknown]
  - Vision blurred [Not Recovered/Not Resolved]
  - Rash [Recovered/Resolved]
  - Eye disorder [Not Recovered/Not Resolved]

NARRATIVE: CASE EVENT DATE: 20090101
